FAERS Safety Report 12942527 (Version 2)
Quarter: 2017Q1

REPORT INFORMATION
  Report Type: Spontaneous
  Country: US (occurrence: US)
  Receive Date: 20161115
  Receipt Date: 20170221
  Transmission Date: 20170428
  Serious: No
  Sender: FDA-Public Use
  Company Number: US-JNJFOC-20161101401

PATIENT
  Sex: Female

DRUGS (2)
  1. INVEGA SUSTENNA [Suspect]
     Active Substance: PALIPERIDONE PALMITATE
     Indication: PRODUCT USED FOR UNKNOWN INDICATION
     Dosage: DELTOID MUSCLE
     Route: 030
     Dates: start: 20161025
  2. INVEGA SUSTENNA [Suspect]
     Active Substance: PALIPERIDONE PALMITATE
     Indication: PRODUCT USED FOR UNKNOWN INDICATION
     Dosage: DELTOID MUSCLE
     Route: 030
     Dates: start: 201610

REACTIONS (5)
  - Off label use [Unknown]
  - Hallucination [Unknown]
  - Drug ineffective [Unknown]
  - Incorrect dose administered [Unknown]
  - Speech disorder [Unknown]

NARRATIVE: CASE EVENT DATE: 201610
